FAERS Safety Report 5341182-7 (Version None)
Quarter: 2007Q2

REPORT INFORMATION
  Report Type: 
  Country: None (occurrence: None)
  Receive Date: 20070405
  Receipt Date: 20061122
  Transmission Date: 20071010
  Serious: No
  Sender: FDA-Public Use
  Company Number: US200611004276

PATIENT
  Sex: Male

DRUGS (2)
  1. CYMBALTA [Suspect]
     Dosage: 60 MG, DAILY (1/D);, 40 MG, DAILY (1/D);
  2. WELLBUTRIN (IBUPROPION HYDROCHLORIDE) [Concomitant]

REACTIONS (5)
  - ANGER [None]
  - ANXIETY [None]
  - FEELING ABNORMAL [None]
  - HYPERHIDROSIS [None]
  - PAIN IN EXTREMITY [None]
